FAERS Safety Report 6396037-6 (Version None)
Quarter: 2009Q4

REPORT INFORMATION
  Report Type: 
  Country: None (occurrence: None)
  Receive Date: 20091009
  Receipt Date: 20091007
  Transmission Date: 20100525
  Serious: Yes (Hospitalization)
  Sender: FDA-Public Use
  Company Number: FR-GILEAD-2009-0023560

PATIENT
  Sex: Male

DRUGS (8)
  1. TRUVADA [Suspect]
     Indication: HIV INFECTION
     Route: 048
     Dates: start: 20070101, end: 20090718
  2. TRUVADA [Suspect]
     Dates: start: 20090101
  3. NORVIR [Suspect]
     Route: 048
     Dates: start: 20090608, end: 20090710
  4. NORVIR [Suspect]
     Dates: start: 20090101
  5. PREZISTA [Suspect]
     Route: 048
     Dates: start: 20090608, end: 20090710
  6. PREZISTA [Suspect]
     Dates: start: 20090101
  7. LAROXYL ROCHE [Concomitant]
     Route: 048
     Dates: start: 20080101
  8. RIVOTRIL [Concomitant]
     Dates: start: 20080101

REACTIONS (2)
  - CONDITION AGGRAVATED [None]
  - JAUNDICE CHOLESTATIC [None]
